FAERS Safety Report 19754519 (Version 1)
Quarter: 2021Q3

REPORT INFORMATION
  Report Type: Spontaneous
  Country: US (occurrence: US)
  Receive Date: 20210825
  Receipt Date: 20210825
  Transmission Date: 20211014
  Serious: Yes (Death, Hospitalization)
  Sender: FDA-Public Use
  Company Number: None

PATIENT
  Age: 3 Year
  Sex: Male
  Weight: 13 kg

DRUGS (4)
  1. MELPHALAN. [Suspect]
     Active Substance: MELPHALAN
     Dates: end: 20210611
  2. CARBOPLATIN. [Suspect]
     Active Substance: CARBOPLATIN
     Dates: end: 20210613
  3. ETOPOSIDE (VP?16) [Suspect]
     Active Substance: ETOPOSIDE
     Dates: end: 20210613
  4. G?CSF (FILGRASTIM, AMGEN) [Suspect]
     Active Substance: FILGRASTIM
     Dosage: ?          OTHER DOSE:70.5 MCG ;?
     Dates: end: 20210629

REACTIONS (7)
  - Neutropenic colitis [None]
  - Venoocclusive liver disease [None]
  - Tachypnoea [None]
  - Thrombotic microangiopathy [None]
  - Pneumonia [None]
  - Respiratory failure [None]
  - Pulmonary haemorrhage [None]

NARRATIVE: CASE EVENT DATE: 20210722
